FAERS Safety Report 17277605 (Version 3)
Quarter: 2020Q1

REPORT INFORMATION
  Report Type: Spontaneous
  Country: US (occurrence: US)
  Receive Date: 20200116
  Receipt Date: 20200326
  Transmission Date: 20200409
  Serious: Yes (Other)
  Sender: FDA-Public Use
  Company Number: US-GLENMARK PHARMACEUTICALS-2020GMK045333

PATIENT

DRUGS (4)
  1. RANITIDINE TABLETS USP, 300 MG [Suspect]
     Active Substance: RANITIDINE HYDROCHLORIDE
     Indication: GASTROOESOPHAGEAL REFLUX DISEASE
     Dosage: 300 MILLIGRAM, HS (1 TIME A DAY AT BEDTIME)
     Route: 048
     Dates: start: 20080101, end: 20150618
  2. RANITIDINE. [Suspect]
     Active Substance: RANITIDINE
     Indication: GASTROOESOPHAGEAL REFLUX DISEASE
     Dosage: 300 MILLIGRAM, OD
     Route: 048
     Dates: start: 20150914, end: 201610
  3. NEXIUM [Concomitant]
     Active Substance: ESOMEPRAZOLE MAGNESIUM
     Indication: PRODUCT USED FOR UNKNOWN INDICATION
     Dosage: UNK
     Route: 065
  4. RANITIDINE TABLETS USP, 300 MG [Suspect]
     Active Substance: RANITIDINE HYDROCHLORIDE
     Dosage: 300 MILLIGRAM, HS (1 TIME A DAY AT BEDTIME)
     Route: 048
     Dates: start: 20170219, end: 20191219

REACTIONS (3)
  - Mucinous breast carcinoma [Recovering/Resolving]
  - Basal cell carcinoma [Unknown]
  - Recalled product administered [Unknown]

NARRATIVE: CASE EVENT DATE: 2011
